FAERS Safety Report 8084453-6 (Version None)
Quarter: 2012Q1

REPORT INFORMATION
  Report Type: 
  Country: None (occurrence: None)
  Receive Date: 20120128
  Receipt Date: 20110324
  Transmission Date: 20120608
  Serious: Yes (Other)
  Sender: FDA-Public Use
  Company Number: US-ABBOTT-11P-163-0714037-00

PATIENT
  Sex: Female

DRUGS (7)
  1. NORCO [Concomitant]
     Indication: PAIN
     Dosage: 10/325MG
     Dates: start: 20080101
  2. SPIRIVA [Concomitant]
     Indication: ASTHMA
  3. HUMIRA [Suspect]
     Indication: PSORIATIC ARTHROPATHY
  4. FORTEO [Concomitant]
     Indication: BONE DENSITY ABNORMAL
     Dates: start: 20100101
  5. HUMIRA [Suspect]
     Indication: OSTEOARTHRITIS
  6. ADVAIR DISKUS 100/50 [Concomitant]
     Indication: ASTHMA
     Dosage: 250/50MG
  7. HUMIRA [Suspect]
     Indication: RHEUMATOID ARTHRITIS
     Dates: start: 20080101

REACTIONS (2)
  - FALL [None]
  - JOINT INJURY [None]
